FAERS Safety Report 20506165 (Version 1)
Quarter: 2022Q1

REPORT INFORMATION
  Report Type: Report from Study
  Country: US (occurrence: US)
  Receive Date: 20220223
  Receipt Date: 20220223
  Transmission Date: 20220423
  Serious: Yes (Hospitalization)
  Sender: FDA-Public Use
  Company Number: US-MYLANLABS-2022M1013793

PATIENT
  Age: 56 Year
  Sex: Male
  Weight: 101.15 kg

DRUGS (1)
  1. GLATIRAMER [Suspect]
     Active Substance: GLATIRAMER
     Indication: Multiple sclerosis
     Dosage: 40 MILLIGRAM, 3XW
     Route: 058
     Dates: end: 202202

REACTIONS (6)
  - Illness [Unknown]
  - Hypoaesthesia [Unknown]
  - Hypertension [Unknown]
  - Asthenia [Unknown]
  - Pyrexia [Unknown]
  - Muscle disorder [Unknown]

NARRATIVE: CASE EVENT DATE: 20220204
